FAERS Safety Report 23126562 (Version 4)
Quarter: 2023Q4

REPORT INFORMATION
  Report Type: Spontaneous
  Country: CA (occurrence: CA)
  Receive Date: 20231030
  Receipt Date: 20231220
  Transmission Date: 20240110
  Serious: Yes (Other)
  Sender: FDA-Public Use
  Company Number: CA-PFIZER INC-202201229993

PATIENT
  Age: 66 Year
  Sex: Female
  Weight: 79 kg

DRUGS (10)
  1. RUXIENCE [Suspect]
     Active Substance: RITUXIMAB-PVVR
     Indication: Granulomatosis with polyangiitis
     Dosage: 375 MG/M3, WEEKLY, FIRST DOSE (MILLIGRAM/SQ. METER)
     Route: 042
     Dates: start: 20220927
  2. RUXIENCE [Suspect]
     Active Substance: RITUXIMAB-PVVR
     Dosage: 375 MG/M3, WEEKLY, SECOND DOSE
     Route: 042
     Dates: start: 20221004
  3. RUXIENCE [Suspect]
     Active Substance: RITUXIMAB-PVVR
     Dosage: 375 MG/M3, WEEKLY, THIRD DOSE
     Route: 042
     Dates: start: 20221011
  4. RUXIENCE [Suspect]
     Active Substance: RITUXIMAB-PVVR
     Dosage: 375 MG/M3, WEEKLY
     Route: 042
     Dates: start: 20221019
  5. RUXIENCE [Suspect]
     Active Substance: RITUXIMAB-PVVR
     Dosage: 500 MG FOR DAY 1, EVERY 6 MONTHS, 3 DOSES
     Route: 042
     Dates: start: 20230509
  6. ACETAMINOPHEN [Concomitant]
     Active Substance: ACETAMINOPHEN
     Indication: Premedication
     Dosage: UNK
     Dates: start: 20221019, end: 20221019
  7. ACETAMINOPHEN [Concomitant]
     Active Substance: ACETAMINOPHEN
     Dosage: UNK
     Dates: start: 20230509, end: 20230509
  8. DIPHENHYDRAMINE HYDROCHLORIDE [Concomitant]
     Active Substance: DIPHENHYDRAMINE HYDROCHLORIDE
     Indication: Premedication
     Dosage: UNK
     Dates: start: 20221019, end: 20221019
  9. DIPHENHYDRAMINE HYDROCHLORIDE [Concomitant]
     Active Substance: DIPHENHYDRAMINE HYDROCHLORIDE
     Dosage: UNK
     Dates: start: 20230509, end: 20230509
  10. METHYLPREDNISOLONE [Concomitant]
     Active Substance: METHYLPREDNISOLONE
     Indication: Premedication
     Dosage: UNK
     Dates: start: 20230509, end: 20230509

REACTIONS (6)
  - Cataract [Recovering/Resolving]
  - Off label use [Unknown]
  - Off label use [Unknown]
  - Intentional product use issue [Unknown]
  - Blood pressure increased [Not Recovered/Not Resolved]
  - Blood pressure fluctuation [Unknown]

NARRATIVE: CASE EVENT DATE: 20230509
